FAERS Safety Report 12502341 (Version 4)
Quarter: 2016Q3

REPORT INFORMATION
  Report Type: Spontaneous
  Country: US (occurrence: US)
  Receive Date: 20160627
  Receipt Date: 20160729
  Transmission Date: 20161109
  Serious: Yes (Hospitalization)
  Sender: FDA-Public Use
  Company Number: US-ASTRAZENECA-2016SE69658

PATIENT
  Age: 71 Year
  Sex: Female
  Weight: 83.9 kg

DRUGS (6)
  1. NEXIUM 24HR [Suspect]
     Active Substance: ESOMEPRAZOLE MAGNESIUM
     Indication: SINUS CONGESTION
     Route: 048
     Dates: start: 20151217
  2. OTHER MEDICINES [Concomitant]
     Dosage: AS NEEDED
  3. TYLENOL [Concomitant]
     Active Substance: ACETAMINOPHEN
     Indication: ARTHRALGIA
     Dosage: 500.0MG UNKNOWN
  4. NEXIUM 24HR [Suspect]
     Active Substance: ESOMEPRAZOLE MAGNESIUM
     Indication: HYPERCHLORHYDRIA
     Dosage: 22.3MG ONE HALF HOUR BEFORE BREAKFAST EACH MORNING
     Route: 048
     Dates: end: 20160604
  5. NEXIUM 24HR [Suspect]
     Active Substance: ESOMEPRAZOLE MAGNESIUM
     Indication: HYPERCHLORHYDRIA
     Route: 048
     Dates: start: 20151217
  6. NEXIUM 24HR [Suspect]
     Active Substance: ESOMEPRAZOLE MAGNESIUM
     Indication: SINUS CONGESTION
     Dosage: 22.3MG ONE HALF HOUR BEFORE BREAKFAST EACH MORNING
     Route: 048
     Dates: end: 20160604

REACTIONS (19)
  - Neck pain [Not Recovered/Not Resolved]
  - Dizziness [Not Recovered/Not Resolved]
  - Drug ineffective for unapproved indication [Unknown]
  - Medial tibial stress syndrome [Unknown]
  - Feeling abnormal [Not Recovered/Not Resolved]
  - Sinus disorder [Unknown]
  - Musculoskeletal chest pain [Not Recovered/Not Resolved]
  - Insomnia [Unknown]
  - Musculoskeletal pain [Not Recovered/Not Resolved]
  - Condition aggravated [Not Recovered/Not Resolved]
  - Hypoacusis [Unknown]
  - Arthritis [Unknown]
  - Chest discomfort [Recovered/Resolved with Sequelae]
  - Pain in extremity [Not Recovered/Not Resolved]
  - Activities of daily living impaired [Not Recovered/Not Resolved]
  - Hypersensitivity [Unknown]
  - Abdominal pain upper [Not Recovered/Not Resolved]
  - Arthropathy [Not Recovered/Not Resolved]
  - Arthralgia [Not Recovered/Not Resolved]

NARRATIVE: CASE EVENT DATE: 20151217
